FAERS Safety Report 7893216-3 (Version None)
Quarter: 2011Q4

REPORT INFORMATION
  Report Type: 
  Country: None (occurrence: None)
  Receive Date: 20111104
  Receipt Date: 20111031
  Transmission Date: 20120403
  Serious: Yes (Death, Other)
  Sender: FDA-Public Use
  Company Number: US-PFIZER INC-2009169467

PATIENT
  Sex: Male

DRUGS (5)
  1. CHANTIX [Suspect]
     Indication: SMOKING CESSATION THERAPY
     Dosage: STARTER MONTH PACK
     Dates: start: 20061201
  2. CYMBALTA [Concomitant]
     Indication: DEPRESSION
     Dosage: UNK
     Dates: start: 19990101
  3. ARICEPT [Concomitant]
     Indication: AMNESIA
     Dosage: UNK
     Dates: start: 19990101
  4. LYRICA [Concomitant]
     Indication: DEPRESSION
     Dosage: UNK
     Dates: start: 20060726
  5. CLONAZEPAM [Concomitant]
     Indication: ANXIETY
     Dosage: UNK
     Dates: start: 20060926

REACTIONS (3)
  - COMPLETED SUICIDE [None]
  - FEAR OF DEATH [None]
  - SUICIDAL IDEATION [None]
